FAERS Safety Report 24131733 (Version 2)
Quarter: 2024Q3

REPORT INFORMATION
  Report Type: Spontaneous
  Country: GB (occurrence: GB)
  Receive Date: 20240724
  Receipt Date: 20240820
  Transmission Date: 20241016
  Serious: Yes (Death, Other)
  Sender: AUROBINDO
  Company Number: GB-TAKEDA-2014TEU002720

PATIENT
  Age: 64 Year
  Sex: Male
  Weight: 89 kg

DRUGS (10)
  1. ACYCLOVIR [Suspect]
     Active Substance: ACYCLOVIR
     Indication: Antiviral prophylaxis
     Dosage: 800 MILLIGRAM, ONCE A DAY (400 MILLIGRAM, BID)
     Route: 065
  2. FLUCLOXACILLIN [Suspect]
     Active Substance: FLUCLOXACILLIN
     Indication: Cellulitis
     Dosage: UNK
     Route: 042
  3. ADCETRIS [Suspect]
     Active Substance: BRENTUXIMAB VEDOTIN
     Indication: Anaplastic large cell lymphoma T- and null-cell types
     Dosage: 160 MILLIGRAM, QD
     Route: 042
     Dates: start: 20140319, end: 20140319
  4. PENICILLIN G [Suspect]
     Active Substance: PENICILLIN G
     Indication: Cellulitis
     Dosage: UNK
     Route: 042
  5. BRENTUXIMAB VEDOTIN [Suspect]
     Active Substance: BRENTUXIMAB VEDOTIN
     Indication: Anaplastic large cell lymphoma T- and null-cell types
     Dosage: 160 MILLIGRAM, ONCE A DAY
     Route: 042
     Dates: start: 20140319, end: 20140319
  6. COTRIMOXAZOLE [Suspect]
     Active Substance: SULFAMETHOXAZOLE\TRIMETHOPRIM
     Indication: Prophylaxis
     Dosage: 1440 MILLIGRAM, EVERY WEEK (480 MILLIGRAM, 3/WEEK)
     Route: 048
  7. COTRIMOXAZOLE [Suspect]
     Active Substance: SULFAMETHOXAZOLE\TRIMETHOPRIM
     Indication: Antiviral prophylaxis
  8. SODIUM CHLORIDE [Suspect]
     Active Substance: SODIUM CHLORIDE
     Indication: Medication dilution
     Dosage: 250 MILLILITER, UNSPECIFIED FREQUENCY
     Route: 065
     Dates: start: 20240319
  9. WATER [Suspect]
     Active Substance: WATER
     Indication: Medication dilution
     Dosage: 33.6 MILLILITER
     Route: 065
     Dates: start: 20140319
  10. PREDNISOLONE [Concomitant]
     Active Substance: PREDNISOLONE
     Indication: Product used for unknown indication
     Dosage: UNK
     Route: 065

REACTIONS (6)
  - Death [Fatal]
  - Cardiovascular disorder [Recovered/Resolved]
  - Cellulitis [Unknown]
  - Infection [Unknown]
  - Off label use [Unknown]
  - Product use issue [Unknown]

NARRATIVE: CASE EVENT DATE: 20140319
